FAERS Safety Report 4655725-X (Version None)
Quarter: 2005Q2

REPORT INFORMATION
  Report Type: 
  Country: None (occurrence: None)
  Receive Date: 20050505
  Receipt Date: 20050415
  Transmission Date: 20051028
  Serious: Yes (Death)
  Sender: FDA-Public Use
  Company Number: FR_050406260

PATIENT
  Age: 28 Year
  Sex: Male

DRUGS (6)
  1. ZYPREXA [Suspect]
     Dosage: 10 MG/1 DAY
     Dates: start: 20050211
  2. CLONAZEPAM [Concomitant]
  3. METHADONE HCL [Concomitant]
  4. SOLIAN (AMISULPRIDE) [Concomitant]
  5. SUBUTEX [Concomitant]
  6. VALIUM [Concomitant]

REACTIONS (1)
  - EXTRAPYRAMIDAL DISORDER [None]
